FAERS Safety Report 7283895-6 (Version None)
Quarter: 2011Q1

REPORT INFORMATION
  Report Type: 
  Country: None (occurrence: None)
  Receive Date: 20110209
  Receipt Date: 20110125
  Transmission Date: 20110831
  Serious: Yes (Other)
  Sender: FDA-Public Use
  Company Number: CA-GENENTECH-309082

PATIENT
  Sex: Female

DRUGS (3)
  1. LUCENTIS [Suspect]
     Indication: CHOROIDAL NEOVASCULARISATION
     Dosage: UNK MG, 1/MONTH
     Route: 031
     Dates: start: 20090112
  2. LUCENTIS [Suspect]
     Dosage: 0.5 MG, 1/MONTH
     Route: 031
     Dates: start: 20101022
  3. ZYMAR [Concomitant]
     Indication: PRODUCT USED FOR UNKNOWN INDICATION

REACTIONS (1)
  - VITREOUS DISORDER [None]
